FAERS Safety Report 10224803 (Version 2)
Quarter: 2014Q2

REPORT INFORMATION
  Report Type: Report from Study
  Country: DE (occurrence: DE)
  Receive Date: 20140609
  Receipt Date: 20140613
  Transmission Date: 20141212
  Serious: Yes (Hospitalization)
  Sender: FDA-Public Use
  Company Number: DE-PFIZER INC-2014147038

PATIENT
  Age: 48 Year
  Sex: Female
  Weight: 67.2 kg

DRUGS (5)
  1. TOFACITINIB CITRATE [Suspect]
     Indication: RHEUMATOID ARTHRITIS
     Dosage: 10 MG, 2X/DAY
     Route: 048
     Dates: start: 20100607, end: 20140303
  2. PREDNISOLON [Concomitant]
     Indication: RHEUMATOID ARTHRITIS
     Dosage: 5 MG, 1X/DAY
     Route: 048
     Dates: start: 20081014
  3. DICLOFENAC [Concomitant]
     Indication: RHEUMATOID ARTHRITIS
     Dosage: 75 MG, 1X/DAY
     Route: 048
     Dates: start: 20130528
  4. PRAMIPEXOLE [Concomitant]
     Indication: RESTLESS LEGS SYNDROME
     Dosage: 0.125 MG, 1X/DAY
     Route: 048
     Dates: start: 201109
  5. ROTIGOTINE [Concomitant]
     Indication: RESTLESS LEGS SYNDROME
     Dosage: 1 MG, 1X/DAY
     Route: 048
     Dates: start: 201209

REACTIONS (3)
  - Road traffic accident [Recovered/Resolved]
  - Contusion [Recovered/Resolved]
  - Joint dislocation [Recovered/Resolved]
